FAERS Safety Report 6957941-0 (Version None)
Quarter: 2010Q3

REPORT INFORMATION
  Report Type: 
  Country: None (occurrence: None)
  Receive Date: 20100817
  Receipt Date: 20090828
  Transmission Date: 20110219
  Serious: No
  Sender: FDA-Public Use
  Company Number: 20097337

PATIENT
  Age: 53 Year
  Sex: Female

DRUGS (1)
  1. LIORESAL [Suspect]
     Indication: MUSCLE SPASTICITY
     Dosage: 195.1 MCG, DAILY, INTRATHECAL
     Route: 037

REACTIONS (2)
  - MUSCLE SPASTICITY [None]
  - POST LUMBAR PUNCTURE SYNDROME [None]
